FAERS Safety Report 11535287 (Version 2)
Quarter: 2015Q3

REPORT INFORMATION
  Report Type: Spontaneous
  Country: FR (occurrence: FR)
  Receive Date: 20150922
  Receipt Date: 20150930
  Transmission Date: 20151125
  Serious: Yes (Other)
  Sender: FDA-Public Use
  Company Number: FR-JNJFOC-20150916573

PATIENT
  Age: 18 Year
  Sex: Male

DRUGS (2)
  1. REMICADE [Suspect]
     Active Substance: INFLIXIMAB
     Indication: CROHN^S DISEASE
     Dosage: AT WEEK 0,2,6.
     Route: 042
  2. REMICADE [Suspect]
     Active Substance: INFLIXIMAB
     Indication: CROHN^S DISEASE
     Dosage: 4 TH INFUSION
     Route: 042

REACTIONS (4)
  - Infusion related reaction [Recovered/Resolved]
  - Drug ineffective [Unknown]
  - Respiratory distress [Recovered/Resolved]
  - Chest discomfort [Recovered/Resolved]
